FAERS Safety Report 24055785 (Version 1)
Quarter: 2024Q3

REPORT INFORMATION
  Report Type: Report from Study
  Country: US (occurrence: None)
  Receive Date: 20240705
  Receipt Date: 20240705
  Transmission Date: 20241016
  Serious: Yes (Death)
  Sender: ASTRAZENECA
  Company Number: 2024A152204

PATIENT
  Sex: Female

DRUGS (2)
  1. LYNPARZA [Suspect]
     Active Substance: OLAPARIB
     Route: 048
  2. LYNPARZA [Suspect]
     Active Substance: OLAPARIB
     Dosage: 150MG TABLET -TAKE ONE TABLET BY MOUTH TWICE DAILY. TAKE WITH OTHER STRENGTH TABLET TO EQUAL 250...
     Route: 048

REACTIONS (1)
  - Death [Fatal]
